FAERS Safety Report 21009740 (Version 1)
Quarter: 2022Q2

REPORT INFORMATION
  Report Type: Spontaneous
  Country: US (occurrence: None)
  Receive Date: 20220626
  Receipt Date: 20220626
  Transmission Date: 20220721
  Serious: Yes (Death)
  Sender: FDA-Public Use
  Company Number: None

PATIENT
  Age: 83 Year
  Sex: Female
  Weight: 53.1 kg

DRUGS (1)
  1. SELINEXOR [Suspect]
     Active Substance: SELINEXOR
     Indication: Plasma cell myeloma
     Dosage: OTHER FREQUENCY : TWICE A WEEK;?
     Route: 048

REACTIONS (4)
  - Pruritus [None]
  - Pain in extremity [None]
  - Nerve compression [None]
  - Hyponatraemia [None]

NARRATIVE: CASE EVENT DATE: 20220607
